FAERS Safety Report 16269849 (Version 2)
Quarter: 2019Q2

REPORT INFORMATION
  Report Type: Spontaneous
  Country: SK (occurrence: SK)
  Receive Date: 20190503
  Receipt Date: 20190522
  Transmission Date: 20190711
  Serious: Yes (Other)
  Sender: FDA-Public Use
  Company Number: SK-PFIZER INC-2019187219

PATIENT
  Sex: Male

DRUGS (3)
  1. TREXAN [Suspect]
     Active Substance: METHOTREXATE SODIUM
     Dosage: 10 MG, WEEKLY (TWICE A DAY, ONCE A WEEK, TAKEN ON THURSDAY)
     Route: 065
     Dates: start: 2015
  2. TREXAN [Suspect]
     Active Substance: METHOTREXATE SODIUM
     Indication: PSORIASIS
     Dosage: UNK UNK, WEEKLY (PROBABLY IN THREE DOSES A DAY, TAKEN ON THURSDAY)
     Route: 065
     Dates: start: 201402
  3. FOLIC ACID. [Concomitant]
     Active Substance: FOLIC ACID
     Dosage: UNK, WEEKLY (BEING USED ON SATURDAY)
     Route: 065

REACTIONS (1)
  - Abnormal behaviour [Unknown]

NARRATIVE: CASE EVENT DATE: 2017
